FAERS Safety Report 4311124-1 (Version None)
Quarter: 2004Q1

REPORT INFORMATION
  Report Type: 
  Country: None (occurrence: None)
  Receive Date: 20040302
  Receipt Date: 20040224
  Transmission Date: 20041129
  Serious: Yes (Hospitalization, Disabling)
  Sender: FDA-Public Use
  Company Number: 002#4#2002-00232

PATIENT
  Age: 62 Year
  Sex: Male

DRUGS (11)
  1. CHLORPHENIRAMINE MALEATE AND PHENYLPROPANOLAMINE HCL [Suspect]
     Indication: HYPERSENSITIVITY
     Dosage: ASNEC, ORAL
     Route: 048
  2. HYDROCHLOROTHIAZIDE [Concomitant]
  3. ALLEREST [Concomitant]
  4. CHLORTRIMETRON [Concomitant]
  5. CORICIDIN [Concomitant]
  6. TAVIST [Concomitant]
  7. TRIAMINIC SRT [Concomitant]
  8. NAPROXEN [Concomitant]
  9. TERFENADINE [Concomitant]
  10. CAPTOPRIL [Concomitant]
  11. LANSOPRAZOLE [Concomitant]

REACTIONS (9)
  - APHASIA [None]
  - BLOOD PRESSURE INCREASED [None]
  - BLOOD PRESSURE SYSTOLIC INCREASED [None]
  - DEAFNESS [None]
  - HAEMORRHAGIC STROKE [None]
  - HEMIPARESIS [None]
  - HEMIPLEGIA [None]
  - TRANSIENT ISCHAEMIC ATTACK [None]
  - URINARY INCONTINENCE [None]
